FAERS Safety Report 12191523 (Version 1)
Quarter: 2016Q1

REPORT INFORMATION
  Report Type: Spontaneous
  Country: US (occurrence: US)
  Receive Date: 20160318
  Receipt Date: 20160318
  Transmission Date: 20160526
  Serious: Yes (Other)
  Sender: FDA-Public Use
  Company Number: US-ASTRAZENECA-2016SE28635

PATIENT
  Age: 22330 Day
  Sex: Female
  Weight: 73.4 kg

DRUGS (4)
  1. PRILOSEC [Suspect]
     Active Substance: OMEPRAZOLE MAGNESIUM
     Indication: EROSIVE OESOPHAGITIS
     Route: 048
  2. XELODA [Concomitant]
     Active Substance: CAPECITABINE
  3. GEMZAR [Concomitant]
     Active Substance: GEMCITABINE HYDROCHLORIDE
  4. ABRAXANE [Concomitant]
     Active Substance: PACLITAXEL

REACTIONS (6)
  - Nausea [Unknown]
  - Pancreatic carcinoma [Not Recovered/Not Resolved]
  - Back pain [Recovered/Resolved]
  - Abdominal discomfort [Unknown]
  - Vomiting [Unknown]
  - Abdominal pain [Unknown]

NARRATIVE: CASE EVENT DATE: 20140424
